FAERS Safety Report 24060750 (Version 1)
Quarter: 2024Q3

REPORT INFORMATION
  Report Type: Spontaneous
  Country: CN (occurrence: CN)
  Receive Date: 20240708
  Receipt Date: 20240708
  Transmission Date: 20241017
  Serious: Yes (Hospitalization, Other)
  Sender: PFIZER
  Company Number: CN-PFIZER INC-PV202400088112

PATIENT
  Age: 57 Year
  Sex: Male
  Weight: 89.8 kg

DRUGS (4)
  1. CYTARABINE [Suspect]
     Active Substance: CYTARABINE
     Indication: Myelodysplastic syndrome
     Dosage: 50 MG, 2X/DAY
     Route: 041
     Dates: start: 20240607, end: 20240613
  2. IDARUBICIN HYDROCHLORIDE [Suspect]
     Active Substance: IDARUBICIN HYDROCHLORIDE
     Indication: Myelodysplastic syndrome
     Dosage: 10 MG, 1X/DAY VIA PUMP INJECTION
     Dates: start: 20240607, end: 20240609
  3. SODIUM CHLORIDE [Concomitant]
     Active Substance: SODIUM CHLORIDE
     Indication: Vehicle solution use
     Dosage: 40 ML, 1X/DAY VIA PUMP INJECTION
     Dates: start: 20240607, end: 20240609
  4. DEXTROSE [Concomitant]
     Active Substance: DEXTROSE\DEXTROSE MONOHYDRATE
     Indication: Vehicle solution use
     Dosage: 100 ML, 2X/DAY
     Route: 041
     Dates: start: 20240607, end: 20240613

REACTIONS (7)
  - White blood cell count decreased [Recovering/Resolving]
  - Platelet count decreased [Recovering/Resolving]
  - Neutrophil count decreased [Recovering/Resolving]
  - Alanine aminotransferase increased [Recovering/Resolving]
  - C-reactive protein increased [Recovering/Resolving]
  - Bronchitis [Unknown]
  - Parainfluenzae virus infection [Unknown]

NARRATIVE: CASE EVENT DATE: 20240601
